FAERS Safety Report 22398532 (Version 1)
Quarter: 2023Q2

REPORT INFORMATION
  Report Type: Report from Study
  Country: CA (occurrence: CA)
  Receive Date: 20230602
  Receipt Date: 20230602
  Transmission Date: 20230721
  Serious: Yes (Death)
  Sender: FDA-Public Use
  Company Number: CA-BAYER-2023A076658

PATIENT
  Age: 68 Year
  Sex: Male

DRUGS (1)
  1. EYLEA [Suspect]
     Active Substance: AFLIBERCEPT
     Indication: Diabetic retinal oedema
     Dosage: SOLUTION FOR INJECTION (40MG/ML)
     Dates: start: 20191114

REACTIONS (1)
  - Death [Fatal]

NARRATIVE: CASE EVENT DATE: 20230503
